FAERS Safety Report 15249829 (Version 3)
Quarter: 2018Q3

REPORT INFORMATION
  Report Type: Spontaneous
  Country: FR (occurrence: FR)
  Receive Date: 20180807
  Receipt Date: 20180928
  Transmission Date: 20181010
  Serious: Yes (Other)
  Sender: FDA-Public Use
  Company Number: FR-ABBVIE-18S-056-2444229-00

PATIENT
  Age: 25 Year
  Sex: Female

DRUGS (6)
  1. EMTRIVA [Suspect]
     Active Substance: EMTRICITABINE
     Indication: HIV INFECTION
     Dosage: 200 MG, 1D
     Route: 065
     Dates: start: 20050523
  2. EFAVIRENZ. [Suspect]
     Active Substance: EFAVIRENZ
     Indication: HIV INFECTION
     Dosage: FREQUENCY OF PRODUCT : U?600 MG, 1D
     Route: 065
     Dates: start: 20050523, end: 20050908
  3. DIDANOSINE. [Suspect]
     Active Substance: DIDANOSINE
     Indication: HIV INFECTION
     Dosage: UNK UNK, U
     Route: 065
     Dates: start: 20050523, end: 20050908
  4. NEVIRAPINE. [Suspect]
     Active Substance: NEVIRAPINE
     Indication: HIV INFECTION
     Dosage: 400 MG, 1D
     Route: 065
     Dates: start: 20050620
  5. COMBIVIR [Suspect]
     Active Substance: LAMIVUDINE\ZIDOVUDINE
     Indication: HIV INFECTION
     Dosage: 200 MG, 1D
     Route: 065
     Dates: start: 20050908
  6. KALETRA [Suspect]
     Active Substance: LOPINAVIR\RITONAVIR
     Indication: HIV INFECTION
     Dosage: UNK UNK, U
     Route: 065
     Dates: start: 20050908

REACTIONS (4)
  - Vertigo [Unknown]
  - Exposure during pregnancy [Unknown]
  - Abortion induced [Unknown]
  - Insomnia [Unknown]

NARRATIVE: CASE EVENT DATE: 20060216
